FAERS Safety Report 9462189 (Version 2)
Quarter: 2013Q3

REPORT INFORMATION
  Report Type: Spontaneous
  Country: US (occurrence: None)
  Receive Date: 20130813
  Receipt Date: 20130822
  Transmission Date: 20140515
  Serious: Yes (Other)
  Sender: FDA-Public Use
  Company Number: JPI-P-034251

PATIENT
  Age: 28 Year
  Sex: Female
  Weight: 68.49 kg

DRUGS (6)
  1. XYREM [Suspect]
     Indication: CATAPLEXY
     Route: 048
     Dates: start: 20130712, end: 201307
  2. XYREM [Suspect]
     Indication: SOMNOLENCE
     Route: 048
     Dates: start: 20130712, end: 201307
  3. CONCERTA (METHYLPHENIDATE HYDROCHLORIDE) [Concomitant]
  4. LEXAPRO (ESCITALOPRAM) [Concomitant]
  5. BIRTH CONTROL PILLS [Concomitant]
  6. MULTIVITAMINS [Concomitant]

REACTIONS (5)
  - Hangover [None]
  - Middle insomnia [None]
  - Cystitis interstitial [None]
  - Condition aggravated [None]
  - Bladder pain [None]
